FAERS Safety Report 6614543-3 (Version None)
Quarter: 2010Q1

REPORT INFORMATION
  Report Type: 
  Country: None (occurrence: None)
  Receive Date: 20100304
  Receipt Date: 20100304
  Transmission Date: 20100710
  Serious: Yes (Other)
  Sender: FDA-Public Use
  Company Number: None

PATIENT
  Sex: Female
  Weight: 68.0396 kg

DRUGS (2)
  1. BACLOFEN [Suspect]
     Indication: MUSCLE SPASMS
     Dosage: 1 X 3 X DAY
     Dates: start: 20100111
  2. BACLOFEN [Suspect]
     Indication: MUSCLE SPASMS
     Dosage: 1 X 3 X DAY
     Dates: start: 20100113

REACTIONS (2)
  - DIARRHOEA [None]
  - NAUSEA [None]
